FAERS Safety Report 6274040-4 (Version None)
Quarter: 2009Q3

REPORT INFORMATION
  Report Type: 
  Country: None (occurrence: None)
  Receive Date: 20090720
  Receipt Date: 20090708
  Transmission Date: 20100115
  Serious: Yes (Other)
  Sender: FDA-Public Use
  Company Number: BE-ELI_LILLY_AND_COMPANY-BE200906000673

PATIENT
  Sex: Female
  Weight: 82 kg

DRUGS (4)
  1. CYMBALTA [Suspect]
     Indication: DEPRESSION
     Dosage: 1 D/F, DAILY (1/D)
     Route: 048
     Dates: start: 20071201
  2. AMLOR [Concomitant]
     Indication: HYPERTENSION
     Dosage: 5 MG, DAILY (1/D)
     Route: 048
     Dates: start: 20080801, end: 20090301
  3. BROMAZEPAM [Concomitant]
     Indication: ANXIETY
     Dosage: 6 MG, DAILY (1/D)
     Route: 048
     Dates: start: 20070801
  4. TENORMIN [Concomitant]
     Indication: HYPERTENSION
     Dosage: 25 MG, DAILY (1/D)
     Dates: start: 20050101

REACTIONS (4)
  - AFFECTIVE DISORDER [None]
  - DIABETES MELLITUS [None]
  - INSOMNIA [None]
  - RESTLESS LEGS SYNDROME [None]
